FAERS Safety Report 5071695-7 (Version None)
Quarter: 2006Q3

REPORT INFORMATION
  Report Type: 
  Country: None (occurrence: None)
  Receive Date: 20060804
  Receipt Date: 20060714
  Transmission Date: 20061208
  Serious: Yes (Other)
  Sender: FDA-Public Use
  Company Number: PHBS2006JP10721

PATIENT
  Age: 75 Year
  Sex: Female

DRUGS (2)
  1. ZOMETA [Suspect]
     Indication: METASTASES TO BONE
     Dosage: 4 MG, UNK
     Route: 042
     Dates: start: 20060710, end: 20060710
  2. NSAID'S [Suspect]
     Indication: PYREXIA
     Route: 048
     Dates: start: 20060710, end: 20060710

REACTIONS (5)
  - DISEASE PROGRESSION [None]
  - IDIOPATHIC THROMBOCYTOPENIC PURPURA [None]
  - LEUKOPENIA [None]
  - PYREXIA [None]
  - THROMBOCYTOPENIA [None]
